FAERS Safety Report 26103052 (Version 2)
Quarter: 2025Q4

REPORT INFORMATION
  Report Type: Spontaneous
  Country: EU (occurrence: EU)
  Receive Date: 20251129
  Receipt Date: 20251218
  Transmission Date: 20260117
  Serious: Yes (Hospitalization, Other)
  Sender: AUROBINDO
  Company Number: EU-MLMSERVICE-20251110-PI706891-00044-1

PATIENT
  Age: 60 Year
  Sex: Male
  Weight: 70 kg

DRUGS (4)
  1. ALPRAZOLAM [Suspect]
     Active Substance: ALPRAZOLAM
     Indication: Anxiety
     Dosage: 0.125 MILLIGRAM, ONCE A DAY, AT BEDTIME
     Route: 061
     Dates: start: 20211114, end: 20211117
  2. ALPRAZOLAM [Suspect]
     Active Substance: ALPRAZOLAM
     Indication: Insomnia
     Dosage: 0.25 MILLIGRAM, ONCE A DAY
     Route: 061
     Dates: start: 20211117
  3. LERCANIDIPINE [Concomitant]
     Active Substance: LERCANIDIPINE
     Indication: Hypertension
     Dosage: UNK
     Route: 065
  4. RAMIPRIL [Concomitant]
     Active Substance: RAMIPRIL
     Indication: Hypertension
     Dosage: UNK
     Route: 065

REACTIONS (7)
  - Obstructive sleep apnoea syndrome [Recovered/Resolved]
  - Violence-related symptom [Recovered/Resolved]
  - Condition aggravated [Recovered/Resolved]
  - Confusional arousal [Recovered/Resolved]
  - Physical assault [Recovered/Resolved]
  - Hypoxia [Unknown]
  - Drug ineffective [Unknown]

NARRATIVE: CASE EVENT DATE: 20211119
